FAERS Safety Report 6844218-7 (Version None)
Quarter: 2010Q3

REPORT INFORMATION
  Report Type: 
  Country: None (occurrence: None)
  Receive Date: 20100715
  Receipt Date: 20100707
  Transmission Date: 20110219
  Serious: Yes (Other)
  Sender: FDA-Public Use
  Company Number: B0664034A

PATIENT
  Age: 61 Year
  Sex: Female

DRUGS (1)
  1. ZENTEL [Suspect]
     Indication: HELMINTHIC INFECTION
     Dosage: 2TAB PER DAY
     Route: 048
     Dates: start: 20100626, end: 20100626

REACTIONS (3)
  - ABDOMINAL PAIN [None]
  - DIARRHOEA [None]
  - HAEMATOCHEZIA [None]
